FAERS Safety Report 9870595 (Version 1)
Quarter: 2014Q1

REPORT INFORMATION
  Report Type: Spontaneous
  Country: US (occurrence: None)
  Receive Date: 20140203
  Receipt Date: 20140203
  Transmission Date: 20141002
  Serious: Yes (Death, Hospitalization)
  Sender: FDA-Public Use
  Company Number: NSR_01332_2014

PATIENT
  Age: 74 Year
  Sex: Female

DRUGS (1)
  1. BACLOFEN [Suspect]
     Dosage: (DF ORAL)

REACTIONS (2)
  - Poisoning [None]
  - Adverse drug reaction [None]
